FAERS Safety Report 7946444-2 (Version None)
Quarter: 2011Q4

REPORT INFORMATION
  Report Type: 
  Country: None (occurrence: None)
  Receive Date: 20111129
  Receipt Date: 20111115
  Transmission Date: 20120403
  Serious: Yes (Hospitalization)
  Sender: FDA-Public Use
  Company Number: US-BAYER-201039236NA

PATIENT
  Age: 35 Year
  Sex: Female

DRUGS (3)
  1. ADVAIR DISKUS 100/50 [Concomitant]
     Indication: ASTHMA EXERCISE INDUCED
     Dosage: UNK UNK, PRN
     Dates: start: 20010101
  2. IRON [Concomitant]
     Indication: ANAEMIA
  3. YASMIN [Suspect]
     Indication: CONTRACEPTION
     Dosage: UNK UNK, UNK
     Route: 048
     Dates: start: 20030318, end: 20040304

REACTIONS (1)
  - CEREBROVASCULAR ACCIDENT [None]
